FAERS Safety Report 6098825-2 (Version None)
Quarter: 2009Q1

REPORT INFORMATION
  Report Type: 
  Country: None (occurrence: None)
  Receive Date: 20090302
  Receipt Date: 20090225
  Transmission Date: 20090719
  Serious: Yes (Hospitalization)
  Sender: FDA-Public Use
  Company Number: A0713039A

PATIENT
  Age: 57 Year
  Sex: Male
  Weight: 113.6 kg

DRUGS (8)
  1. AVANDIA [Suspect]
     Dosage: 2MG TWICE PER DAY
     Route: 048
     Dates: start: 20030601, end: 20060101
  2. GLUCOVANCE [Concomitant]
  3. METFORMIN HCL [Concomitant]
  4. ZOCOR [Concomitant]
  5. HYDROCHLOROTHIAZIDE [Concomitant]
  6. GLYBURIDE [Concomitant]
  7. LEVITRA [Concomitant]
  8. CIALIS [Concomitant]
     Dates: start: 20050201

REACTIONS (5)
  - ANXIETY [None]
  - INJURY [None]
  - MYOCARDIAL ISCHAEMIA [None]
  - PAIN [None]
  - TRANSIENT ISCHAEMIC ATTACK [None]
